FAERS Safety Report 11657559 (Version 3)
Quarter: 2015Q4

REPORT INFORMATION
  Report Type: Report from Study
  Country: US (occurrence: US)
  Receive Date: 20151023
  Receipt Date: 20151027
  Transmission Date: 20160304
  Serious: No
  Sender: FDA-Public Use
  Company Number: US-ABBVIE-15P-163-1425121-00

PATIENT
  Age: 43 Year
  Sex: Female

DRUGS (5)
  1. LUPRON DEPOT [Suspect]
     Active Substance: LEUPROLIDE ACETATE
     Indication: OFF LABEL USE
     Route: 065
     Dates: start: 20141210
  2. SYNTHROID [Concomitant]
     Active Substance: LEVOTHYROXINE SODIUM
     Indication: HYPOTHYROIDISM
     Route: 048
     Dates: start: 2008
  3. TOPAMAX [Concomitant]
     Active Substance: TOPIRAMATE
     Indication: VERTIGO
     Route: 048
     Dates: start: 201101
  4. LORATADINE. [Concomitant]
     Active Substance: LORATADINE
     Indication: SEASONAL ALLERGY
     Route: 048
     Dates: start: 201204
  5. FLONASE [Concomitant]
     Active Substance: FLUTICASONE PROPIONATE
     Indication: SEASONAL ALLERGY
     Dosage: 1 SPRAY EACH NOSTRIL QPM
     Route: 045
     Dates: start: 201204

REACTIONS (7)
  - Menstrual disorder [Recovered/Resolved]
  - Vertigo [Recovered/Resolved]
  - Feeling abnormal [Recovered/Resolved]
  - Muscle spasms [Not Recovered/Not Resolved]
  - Off label use [Unknown]
  - Sinusitis [Recovered/Resolved]
  - Weight decreased [Not Recovered/Not Resolved]

NARRATIVE: CASE EVENT DATE: 20141210
